FAERS Safety Report 14454383 (Version 1)
Quarter: 2018Q1

REPORT INFORMATION
  Report Type: Spontaneous
  Country: CN (occurrence: CN)
  Receive Date: 20180129
  Receipt Date: 20180129
  Transmission Date: 20180509
  Serious: Yes (Life-Threatening, Other)
  Sender: FDA-Public Use
  Company Number: PHHY2017CN071873

PATIENT

DRUGS (2)
  1. FLUORESCITE [Suspect]
     Active Substance: FLUORESCEIN SODIUM
     Indication: ANGIOGRAM RETINA
     Dosage: (SKIN TEST)
     Route: 065
     Dates: start: 20170511, end: 20170511
  2. FLUORESCITE [Suspect]
     Active Substance: FLUORESCEIN SODIUM
     Dosage: UNK
     Route: 042
     Dates: start: 20170518, end: 20170518

REACTIONS (9)
  - Pruritus [Recovered/Resolved]
  - Electrocardiogram ST-T segment depression [Unknown]
  - Hypoaesthesia oral [Recovered/Resolved]
  - Laryngeal oedema [Unknown]
  - Lenticular opacities [Unknown]
  - Blood pressure increased [Recovering/Resolving]
  - Hypersensitivity [Recovered/Resolved]
  - Dyspnoea [Unknown]
  - Rash [Recovered/Resolved]

NARRATIVE: CASE EVENT DATE: 20170511
